FAERS Safety Report 7751170-9 (Version None)
Quarter: 2011Q3

REPORT INFORMATION
  Report Type: 
  Country: None (occurrence: None)
  Receive Date: 20110914
  Receipt Date: 20070319
  Transmission Date: 20111222
  Serious: Yes (Death)
  Sender: FDA-Public Use
  Company Number: PHHY2007NL03746

PATIENT
  Sex: Female

DRUGS (3)
  1. SANDOSTATIN LAR [Suspect]
     Indication: ACROMEGALY
     Dosage: 30 MG ONCE PER 4 WEEKS
     Dates: start: 20050818
  2. SANDOSTATIN LAR [Suspect]
     Dosage: 30 MG ONCE PER 4 WEEKS
     Dates: start: 20060116
  3. SANDOSTATIN LAR [Suspect]
     Dosage: 20 MG EVERY 4 WEEKS
     Dates: start: 20070212

REACTIONS (1)
  - DEATH [None]
